FAERS Safety Report 19280490 (Version 4)
Quarter: 2021Q3

REPORT INFORMATION
  Report Type: Spontaneous
  Country: DE (occurrence: DE)
  Receive Date: 20210520
  Receipt Date: 20210719
  Transmission Date: 20211014
  Serious: Yes (Hospitalization, Other)
  Sender: FDA-Public Use
  Company Number: DE-ORGANON-O2103DEU003065

PATIENT
  Age: 27 Year
  Sex: Female

DRUGS (9)
  1. PROGESTERONE. [Suspect]
     Active Substance: PROGESTERONE
     Indication: ASSISTED REPRODUCTIVE TECHNOLOGY
     Dosage: 2 DOSAGE FORM, QD, 2X1, UTROGEST LUTEAL
     Route: 067
  2. TRIPTOFEM [Suspect]
     Active Substance: TRIPTORELIN ACETATE
     Indication: ASSISTED REPRODUCTIVE TECHNOLOGY
     Dosage: 1 DOSAGE FORM, TOTAL, CONCENTRATION: 0.1 MG/ML, 1 AMP., SOLUTION FOR INJECTION IN A PRE?FILLED SYRIN
     Route: 058
     Dates: start: 20210228
  3. TRIPTOFEM [Suspect]
     Active Substance: TRIPTORELIN ACETATE
     Indication: OVULATION INDUCTION
  4. ESTRIFAM [ESTRADIOL] [Suspect]
     Active Substance: ESTRADIOL
     Indication: ASSISTED REPRODUCTIVE TECHNOLOGY
     Dosage: 2 DOSAGE FORM, QD, 2X1
     Route: 067
  5. BEMFOLA [Suspect]
     Active Substance: FOLLITROPIN ALFA
     Indication: ASSISTED REPRODUCTIVE TECHNOLOGY
     Dosage: 150 IU/DAY (1 IN 1 D)
     Route: 065
  6. PROGESTERONE. [Suspect]
     Active Substance: PROGESTERONE
     Indication: ASSISTED REPRODUCTIVE TECHNOLOGY
     Dosage: 9 DOSAGE FORM, QD, 3X3, PROGESTAN
     Route: 067
  7. GONADOTROPIN, CHORIONIC [Suspect]
     Active Substance: CHORIOGONADOTROPIN ALFA
     Indication: ASSISTED REPRODUCTIVE TECHNOLOGY
     Dosage: 500 INTERNATIONAL UNIT (500 IU ON THE DAY OF THE PUNCTURE AND 500 IU ON THE DAY OF TRANSFER); HCG
     Route: 065
  8. ORGALUTRAN [Suspect]
     Active Substance: GANIRELIX ACETATE
     Indication: ASSISTED REPRODUCTIVE TECHNOLOGY
     Dosage: DOWN REGULATION
     Route: 065
  9. BREVACTID [Suspect]
     Active Substance: GONADOTROPHIN, CHORIONIC
     Indication: ASSISTED REPRODUCTIVE TECHNOLOGY
     Dosage: 500 IU ON THE DAY OF PUNCTURE AND 500 IU ON THE DAY OF TRANSFER (1 D)
     Route: 030

REACTIONS (3)
  - Off label use [Unknown]
  - Adverse reaction [Recovered/Resolved]
  - Ovarian hyperstimulation syndrome [Recovered/Resolved]

NARRATIVE: CASE EVENT DATE: 20210301
